FAERS Safety Report 4643377-4 (Version None)
Quarter: 2005Q2

REPORT INFORMATION
  Report Type: 
  Country: None (occurrence: None)
  Receive Date: 20050421
  Receipt Date: 20050408
  Transmission Date: 20051028
  Serious: No
  Sender: FDA-Public Use
  Company Number: US-2005-003166

PATIENT
  Age: 43 Year
  Sex: Female

DRUGS (1)
  1. BETASERON [Suspect]
     Indication: MULTIPLE SCLEROSIS
     Dosage: 9 MIU, EVERY 2D, SUBCUTANEOUS
     Route: 058
     Dates: start: 20050209

REACTIONS (1)
  - VAGINAL HAEMORRHAGE [None]
